FAERS Safety Report 23673578 (Version 1)
Quarter: 2024Q1

REPORT INFORMATION
  Report Type: Spontaneous
  Country: CN (occurrence: CN)
  Receive Date: 20240326
  Receipt Date: 20240326
  Transmission Date: 20240409
  Serious: Yes (Other)
  Sender: FDA-Public Use
  Company Number: CN-Jiangsu Hengrui Medicine Co., Ltd.-2154835

PATIENT
  Age: 38 Year
  Sex: Female
  Weight: 51 kg

DRUGS (8)
  1. CISATRACURIUM BESYLATE [Suspect]
     Active Substance: CISATRACURIUM BESYLATE
     Indication: Induction of anaesthesia
     Route: 042
     Dates: start: 20240306, end: 20240306
  2. ACETAMINOPHEN [Suspect]
     Active Substance: ACETAMINOPHEN
     Route: 042
     Dates: start: 20240306, end: 20240306
  3. SODIUM ACETATE [Concomitant]
     Active Substance: SODIUM ACETATE
     Route: 041
     Dates: start: 20240306, end: 20240306
  4. SODIUM CHLORIDE [Concomitant]
     Active Substance: SODIUM CHLORIDE
     Route: 041
     Dates: start: 20240306, end: 20240306
  5. REMIFENTANIL [Suspect]
     Active Substance: REMIFENTANIL
     Route: 042
     Dates: start: 20240306, end: 20240306
  6. SUFENTANIL [Suspect]
     Active Substance: SUFENTANIL
     Route: 042
     Dates: start: 20240306, end: 20240306
  7. PROPOFOL [Suspect]
     Active Substance: PROPOFOL
     Route: 042
     Dates: start: 20240306, end: 20240306
  8. AZASETRON HYDROCHLORIDE [Suspect]
     Active Substance: AZASETRON HYDROCHLORIDE
     Route: 042
     Dates: start: 20240306, end: 20240306

REACTIONS (1)
  - Vomiting [Recovering/Resolving]

NARRATIVE: CASE EVENT DATE: 20240306
